FAERS Safety Report 11841735 (Version 1)
Quarter: 2015Q4

REPORT INFORMATION
  Report Type: Spontaneous
  Country: US (occurrence: None)
  Receive Date: 20151215
  Receipt Date: 20151215
  Transmission Date: 20160305
  Serious: Yes (Other)
  Sender: FDA-Public Use
  Company Number: 002027279A

PATIENT
  Age: 17 Year
  Sex: Female

DRUGS (4)
  1. PROACTIV RENEWING CLEANSER [Suspect]
     Active Substance: BENZOYL PEROXIDE
     Indication: ACNE
     Dosage: DERMAL
     Route: 061
     Dates: start: 20150923, end: 20150924
  2. PROACTIV SOLUTION BLACKHEAD DISSOLVING [Suspect]
     Active Substance: SALICYLIC ACID
     Indication: ACNE
     Dosage: DERMAL
     Route: 061
     Dates: start: 20150923, end: 20150924
  3. PROACTIV REPAIRING TREATMENT [Suspect]
     Active Substance: BENZOYL PEROXIDE
     Indication: ACNE
     Dosage: DERMAL
     Route: 061
     Dates: start: 20150923, end: 20150924
  4. ALBUTEROL INHALER [Concomitant]
     Active Substance: ALBUTEROL

REACTIONS (2)
  - Thermal burn [None]
  - Hypersensitivity [None]

NARRATIVE: CASE EVENT DATE: 20150924
